FAERS Safety Report 21564493 (Version 5)
Quarter: 2023Q2

REPORT INFORMATION
  Report Type: Report from Study
  Country: US (occurrence: US)
  Receive Date: 20221108
  Receipt Date: 20230612
  Transmission Date: 20230721
  Serious: Yes (Hospitalization)
  Sender: FDA-Public Use
  Company Number: US-ARGENX-2022-ARGX-US002337

PATIENT
  Sex: Female
  Weight: 76.644 kg

DRUGS (2)
  1. VYVGART [Suspect]
     Active Substance: EFGARTIGIMOD ALFA-FCAB
     Indication: Myasthenia gravis
     Dosage: UNK
     Route: 042
     Dates: start: 20230117
  2. VYVGART [Suspect]
     Active Substance: EFGARTIGIMOD ALFA-FCAB
     Dosage: UNK
     Route: 042
     Dates: start: 20230124

REACTIONS (7)
  - Pneumonia [Unknown]
  - Urinary tract infection [Unknown]
  - Seizure [Recovered/Resolved]
  - Myasthenia gravis crisis [Recovered/Resolved]
  - Disease progression [Recovered/Resolved]
  - Pulmonary congestion [Unknown]
  - Cough [Unknown]
